FAERS Safety Report 8001721 (Version 2)
Quarter: 2015Q4

REPORT INFORMATION
  Report Type: Report from Study
  Country: US (occurrence: US)
  Receive Date: 20110622
  Receipt Date: 20151125
  Transmission Date: 20160305
  Serious: Yes (Hospitalization, Other)
  Sender: FDA-Public Use
  Company Number: US-ROCHE-714082

PATIENT
  Age: 57 Year
  Sex: Female

DRUGS (3)
  1. BEVACIZUMAB [Suspect]
     Active Substance: BEVACIZUMAB
     Indication: NEOPLASM MALIGNANT
     Dosage: DOSE: 15MG/KG OVER 30-90 MIN ON DAY 1, LAST DOSE: 10 MAY 2010
     Route: 042
  2. CARBOPLATIN. [Suspect]
     Active Substance: CARBOPLATIN
     Indication: NEOPLASM MALIGNANT
     Dosage: DOSE: AUC 6 IP ON DAY 1
     Route: 033
  3. PACLITAXEL. [Suspect]
     Active Substance: PACLITAXEL
     Indication: NEOPLASM MALIGNANT
     Dosage: FREQUENCY: OVER 1 HOUR ON DAYS 1,8 AND 15
     Route: 042

REACTIONS (4)
  - Small intestinal obstruction [Unknown]
  - Pelvic infection [Recovered/Resolved]
  - Abdominal pain [Unknown]
  - Abdominal pain [Unknown]

NARRATIVE: CASE EVENT DATE: 20100524
